FAERS Safety Report 24406623 (Version 1)
Quarter: 2024Q4

REPORT INFORMATION
  Report Type: Spontaneous
  Country: AT (occurrence: AT)
  Receive Date: 20241007
  Receipt Date: 20241007
  Transmission Date: 20250114
  Serious: Yes (Other)
  Sender: ROVIPHARM SAS
  Company Number: AT-ROVI-20241002

PATIENT
  Sex: Female

DRUGS (1)
  1. RISPERIDONE [Suspect]
     Active Substance: RISPERIDONE
     Indication: Product used for unknown indication

REACTIONS (2)
  - Psychotic symptom [Unknown]
  - Condition aggravated [Unknown]
